FAERS Safety Report 10145679 (Version 2)
Quarter: 2014Q2

REPORT INFORMATION
  Report Type: Spontaneous
  Country: US (occurrence: US)
  Receive Date: 20140501
  Receipt Date: 20140501
  Transmission Date: 20141212
  Serious: No
  Sender: FDA-Public Use
  Company Number: US-ABBVIE-14P-163-1192944-00

PATIENT
  Age: 2 Year
  Sex: Female
  Weight: 13.62 kg

DRUGS (3)
  1. CREON [Suspect]
     Indication: CYSTIC FIBROSIS
     Dosage: 4 CAPSULES WITH MEALS AND 2 TO 3 CAPSULES WITH SNACKS
     Dates: start: 201107
  2. XOPENEX [Concomitant]
     Indication: DYSPNOEA
  3. AQUADEKS [Concomitant]
     Indication: CYSTIC FIBROSIS

REACTIONS (6)
  - Product quality issue [Unknown]
  - Product quality issue [Unknown]
  - Product quality issue [Unknown]
  - Product quality issue [Unknown]
  - Diarrhoea [Recovering/Resolving]
  - Abdominal pain upper [Recovering/Resolving]
